FAERS Safety Report 8155206-5 (Version None)
Quarter: 2012Q1

REPORT INFORMATION
  Report Type: 
  Country: None (occurrence: None)
  Receive Date: 20120222
  Receipt Date: 20120214
  Transmission Date: 20120608
  Serious: Yes (Other)
  Sender: FDA-Public Use
  Company Number: GB-BRISTOL-MYERS SQUIBB COMPANY-16401770

PATIENT

DRUGS (1)
  1. YERVOY [Suspect]

REACTIONS (1)
  - DEEP VEIN THROMBOSIS [None]
